FAERS Safety Report 8426125-1 (Version None)
Quarter: 2012Q2

REPORT INFORMATION
  Report Type: 
  Country: None (occurrence: None)
  Receive Date: 20120611
  Receipt Date: 20120601
  Transmission Date: 20120825
  Serious: Yes (Other)
  Sender: FDA-Public Use
  Company Number: US-JNJFOC-20120602227

PATIENT

DRUGS (1)
  1. NUCYNTA [Suspect]
     Indication: PRODUCT USED FOR UNKNOWN INDICATION
     Route: 065

REACTIONS (5)
  - DRUG DIVERSION [None]
  - MENTAL STATUS CHANGES [None]
  - EUPHORIC MOOD [None]
  - HALLUCINATION [None]
  - ADVERSE EVENT [None]
